FAERS Safety Report 14198511 (Version 1)
Quarter: 2017Q4

REPORT INFORMATION
  Report Type: Spontaneous
  Country: CL (occurrence: CL)
  Receive Date: 20171117
  Receipt Date: 20171117
  Transmission Date: 20180321
  Serious: Yes (Hospitalization, Other)
  Sender: FDA-Public Use
  Company Number: CL-NAPPMUNDI-GBR-2017-0050760

PATIENT

DRUGS (5)
  1. RAVOTRIL [Concomitant]
     Active Substance: CLONAZEPAM
     Dosage: 5 MG, DAILY [4 MG THIS WEEK AT NIGHT AND 1 IN THE MORNING]
  2. LAFIGIN [Concomitant]
     Active Substance: LAMOTRIGINE
     Dosage: DAILY (1 A DAY)
  3. NORSPAN [Suspect]
     Active Substance: BUPRENORPHINE
     Indication: PROCEDURAL PAIN
     Dosage: 1 DF, Q3D
     Route: 062
     Dates: start: 20170506, end: 20170706
  4. ESZOPICLONE. [Concomitant]
     Active Substance: ESZOPICLONE
     Dosage: 1 DF, NOCTE
  5. AROXAT [Concomitant]
     Dosage: AM (1 IN THE MORNING)

REACTIONS (6)
  - Suicidal ideation [Not Recovered/Not Resolved]
  - Product use issue [Unknown]
  - Suicide attempt [Not Recovered/Not Resolved]
  - Anxiety [Not Recovered/Not Resolved]
  - Drug withdrawal syndrome [Not Recovered/Not Resolved]
  - Product use issue [Unknown]

NARRATIVE: CASE EVENT DATE: 20170506
